FAERS Safety Report 9169118 (Version 1)
Quarter: 2013Q1

REPORT INFORMATION
  Report Type: Spontaneous
  Country: US (occurrence: None)
  Receive Date: 20130308
  Receipt Date: 20130308
  Transmission Date: 20140127
  Serious: Yes (Other)
  Sender: FDA-Public Use
  Company Number: AUR-APL-2013-01857

PATIENT
  Age: 54 Year
  Sex: Male

DRUGS (13)
  1. RIBAVIRIN (RIBAVIRIN) [Suspect]
     Indication: HEPATITIS C
     Dosage: 600 MG, 2 IN 1 D
  2. PEGINTERFERON ALFA-2A [Suspect]
     Indication: HEPATITIS C
  3. METFORMIN ER (METFORMIN HYDROCHLORIDE) [Concomitant]
  4. AMLODIPINE BESYLATE (AMLODIPINE BESILATE) [Concomitant]
  5. LISINOPRIL/ HYDROCHLOROTHIAZIDE (PRINZIDE/00977901/) [Concomitant]
  6. ROSIGLITAZONE MALEATE (ROSIGLITAZONE MALEATE) [Concomitant]
  7. AVANDARYL (AVANDARYL) [Concomitant]
  8. ADDERALL XR (OBETROL /01345401/) [Concomitant]
  9. PROZAC (FLUOXETINE) [Concomitant]
  10. SINGULAIR [Concomitant]
  11. PULMICORT (BUDESONIDE) [Concomitant]
  12. ALBUTEROL (SALBUTAMOL) [Concomitant]
  13. VITAMINS [Concomitant]

REACTIONS (3)
  - Neutropenia [None]
  - Anaemia [None]
  - No therapeutic response [None]
